FAERS Safety Report 21987821 (Version 1)
Quarter: 2023Q1

REPORT INFORMATION
  Report Type: Spontaneous
  Country: US (occurrence: US)
  Receive Date: 20230214
  Receipt Date: 20230214
  Transmission Date: 20230417
  Serious: Yes (Life-Threatening, Other)
  Sender: FDA-Public Use
  Company Number: US-SUN PHARMACEUTICAL INDUSTRIES LTD-2023R1-377979

PATIENT
  Age: 82 Year
  Sex: Male

DRUGS (5)
  1. CEFTRIAXONE [Suspect]
     Active Substance: CEFTRIAXONE
     Indication: Antibiotic therapy
     Dosage: UNK
     Route: 042
  2. AZITHROMYCIN [Suspect]
     Active Substance: AZITHROMYCIN
     Indication: Antibiotic therapy
     Dosage: UNK
     Route: 042
  3. APIXABAN [Suspect]
     Active Substance: APIXABAN
     Indication: Product used for unknown indication
     Dosage: UNK
     Route: 065
  4. FUROSEMIDE [Suspect]
     Active Substance: FUROSEMIDE
     Indication: Polyuria
     Dosage: UNK
     Route: 042
  5. METOPROLOL [Suspect]
     Active Substance: METOPROLOL
     Indication: Polyuria
     Dosage: UNK
     Route: 042

REACTIONS (7)
  - Condition aggravated [Unknown]
  - Respiratory failure [Unknown]
  - Left ventricular failure [Unknown]
  - Hypokinesia [Unknown]
  - Leukocytosis [Unknown]
  - Acute respiratory distress syndrome [Unknown]
  - Pleural effusion [Unknown]
